FAERS Safety Report 24745063 (Version 1)
Quarter: 2024Q4

REPORT INFORMATION
  Report Type: Report from Study
  Country: BE (occurrence: BE)
  Receive Date: 20241217
  Receipt Date: 20241217
  Transmission Date: 20250115
  Serious: Yes (Death)
  Sender: ABBVIE
  Company Number: BE-ABBVIE-6049339

PATIENT
  Age: 85 Year
  Sex: Male

DRUGS (5)
  1. CARBIDOPA\LEVODOPA [Suspect]
     Active Substance: CARBIDOPA\LEVODOPA
     Indication: Parkinson^s disease
     Route: 050
     Dates: start: 20230801
  2. CARBIDOPA\LEVODOPA [Suspect]
     Active Substance: CARBIDOPA\LEVODOPA
     Dosage: MORNING DOSAGE (ML):-7.0,  ADDITIONAL TUBE FILING (ML):- 3.0, CONTINUOUS DOSAGE (ML/H):- 3.5, EXT...
     Route: 050
     Dates: start: 20241022, end: 20241212
  3. CARBIDOPA\LEVODOPA [Suspect]
     Active Substance: CARBIDOPA\LEVODOPA
     Dosage: MORNING DOSAGE (ML):-7.0,  ADDITIONAL TUBE FILING (ML):- 3.0, CONTINUOUS DOSAGE (ML/H):- 3.6, EXT...
     Route: 050
     Dates: start: 20241002, end: 20241002
  4. CARBIDOPA\LEVODOPA [Suspect]
     Active Substance: CARBIDOPA\LEVODOPA
     Dosage: MORNING DOSAGE (ML):-7.0,  ADDITIONAL TUBE FILING (ML):- 3.0, CONTINUOUS DOSAGE (ML/H):- 3.5, EXT...
     Route: 050
     Dates: start: 20240802, end: 20240802
  5. CARBIDOPA\LEVODOPA [Suspect]
     Active Substance: CARBIDOPA\LEVODOPA
     Dosage: MORNING DOSAGE (ML):-7.0,  ADDITIONAL TUBE FILING (ML):- 3.0, CONTINUOUS DOSAGE (ML/H):- 3.8, EXT...
     Route: 050
     Dates: start: 20240731, end: 20240731

REACTIONS (1)
  - Death [Fatal]

NARRATIVE: CASE EVENT DATE: 20241212
